FAERS Safety Report 15402561 (Version 2)
Quarter: 2018Q4

REPORT INFORMATION
  Report Type: Spontaneous
  Country: BR (occurrence: BR)
  Receive Date: 20180919
  Receipt Date: 20181221
  Transmission Date: 20190204
  Serious: Yes (Life-Threatening, Hospitalization, Other)
  Sender: FDA-Public Use
  Company Number: PHHY2018BR032619

PATIENT
  Age: 8 Year
  Sex: Male
  Weight: 22.5 kg

DRUGS (2)
  1. RITALINA [Suspect]
     Active Substance: METHYLPHENIDATE HYDROCHLORIDE
     Indication: AGITATION
     Dosage: 10 MG, QD
     Route: 048
  2. RITALINA [Suspect]
     Active Substance: METHYLPHENIDATE HYDROCHLORIDE
     Indication: ATTENTION DEFICIT/HYPERACTIVITY DISORDER
     Dosage: 20 MG, QD
     Route: 048
     Dates: end: 201808

REACTIONS (5)
  - Neuropathy peripheral [Not Recovered/Not Resolved]
  - Drug dependence [Recovering/Resolving]
  - Performance status decreased [Unknown]
  - Coma [Recovered/Resolved]
  - Accident [Recovered/Resolved]

NARRATIVE: CASE EVENT DATE: 20180820
